FAERS Safety Report 11420134 (Version 1)
Quarter: 2015Q3

REPORT INFORMATION
  Report Type: Report from Study
  Country: AT (occurrence: AT)
  Receive Date: 20150826
  Receipt Date: 20150826
  Transmission Date: 20151125
  Serious: Yes (Other)
  Sender: FDA-Public Use
  Company Number: AT-GLAXOSMITHKLINE-AT2015GSK121694

PATIENT
  Age: 66 Year
  Sex: Male

DRUGS (2)
  1. TRAMETINIB [Suspect]
     Active Substance: TRAMETINIB
     Indication: METASTATIC MALIGNANT MELANOMA
     Dosage: 0.5 MG, TID
     Route: 048
     Dates: start: 20150204
  2. DABRAFENIB [Suspect]
     Active Substance: DABRAFENIB
     Indication: METASTATIC MALIGNANT MELANOMA
     Dosage: 75 MG, BID
     Route: 048
     Dates: start: 20141204

REACTIONS (4)
  - Vision blurred [Recovering/Resolving]
  - Palmoplantar keratoderma [Unknown]
  - Pyrexia [Unknown]
  - Uveitis [Unknown]

NARRATIVE: CASE EVENT DATE: 201412
